FAERS Safety Report 20511216 (Version 2)
Quarter: 2022Q1

REPORT INFORMATION
  Report Type: Spontaneous
  Country: ES (occurrence: ES)
  Receive Date: 20220224
  Receipt Date: 20220331
  Transmission Date: 20220423
  Serious: Yes (Other)
  Sender: FDA-Public Use
  Company Number: ES-LUPIN PHARMACEUTICALS INC.-2022-02310

PATIENT
  Age: 3 Decade
  Sex: Female

DRUGS (20)
  1. CALCIUM [Suspect]
     Active Substance: CALCIUM
     Indication: Supplementation therapy
     Dosage: DOSE: 1500MG/400UNITS, CALCIUM CARBONATE
     Route: 065
  2. DARBEPOETIN ALFA [Suspect]
     Active Substance: DARBEPOETIN ALFA
     Indication: Iron deficiency anaemia
     Dosage: 0.45 MICROGRAM/KILOGRAM, WEEKLY
     Route: 065
  3. DARBEPOETIN ALFA [Suspect]
     Active Substance: DARBEPOETIN ALFA
     Dosage: 0.75 MICROGRAM/KILOGRAM, WEEKLY (DOSE INCREASED)
     Route: 065
  4. CALCIFEDIOL [Suspect]
     Active Substance: CALCIFEDIOL
     Indication: Supplementation therapy
     Dosage: 3 MG; (DOSE: 180000 IU/MONTH)
     Route: 030
  5. CHOLECALCIFEROL [Suspect]
     Active Substance: CHOLECALCIFEROL
     Indication: Supplementation therapy
     Dosage: DOSE: 200000 UNITS EVERY 15 DAYS
     Route: 030
  6. CHOLECALCIFEROL [Suspect]
     Active Substance: CHOLECALCIFEROL
     Dosage: UNK, BID (EVERY 12 HOURS)
     Route: 048
  7. CHOLECALCIFEROL [Suspect]
     Active Substance: CHOLECALCIFEROL
     Dosage: UNK, (EVERY 15 DAYS)
     Route: 030
  8. COPPER [Suspect]
     Active Substance: COPPER
     Indication: Supplementation therapy
     Dosage: 2 MG, BID (EVERY 12 HOURS)
     Route: 048
  9. COPPER [Suspect]
     Active Substance: COPPER
     Dosage: 6 MG, QD
     Route: 048
  10. FERRIC CARBOXYMALTOSE [Suspect]
     Active Substance: FERRIC CARBOXYMALTOSE
     Indication: Supplementation therapy
     Dosage: 1000 MG
     Route: 042
  11. FERRIC CARBOXYMALTOSE [Suspect]
     Active Substance: FERRIC CARBOXYMALTOSE
     Dosage: 1000 MG (ADDITIONAL DOSE)
     Route: 042
  12. FERRIC CARBOXYMALTOSE [Suspect]
     Active Substance: FERRIC CARBOXYMALTOSE
     Dosage: 500 MG; (RECEIVED TWO DOSES)
     Route: 042
  13. FERRIC CARBOXYMALTOSE [Suspect]
     Active Substance: FERRIC CARBOXYMALTOSE
     Dosage: 500 MG; (RECEIVED TWO DOSES)
     Route: 042
  14. FERROUS SULFATE [Suspect]
     Active Substance: FERROUS SULFATE
     Indication: Supplementation therapy
     Dosage: 80 MG, TID
     Route: 048
  15. MAGNESIUM [Suspect]
     Active Substance: MAGNESIUM
     Indication: Supplementation therapy
     Dosage: 200 MG, TID
     Route: 048
  16. VITAMIN A PALMITATE [Suspect]
     Active Substance: VITAMIN A PALMITATE
     Indication: Supplementation therapy
     Dosage: UNK, TID (DOSE: 50000 UNITS EVERY 8 HOURS)
     Route: 048
  17. VITAMIN A PALMITATE [Suspect]
     Active Substance: VITAMIN A PALMITATE
     Dosage: 4 DOSAGE FORM, QD (DOSE: 50000 UNITS)
     Route: 048
  18. ZINC [Suspect]
     Active Substance: ZINC
     Indication: Supplementation therapy
     Dosage: 15 MG, BID
     Route: 048
  19. ZINC [Suspect]
     Active Substance: ZINC
     Dosage: 15 MG, QD
     Route: 048
  20. ZINC [Suspect]
     Active Substance: ZINC
     Indication: Supplementation therapy
     Dosage: UNK
     Route: 065

REACTIONS (2)
  - Exposure during pregnancy [Unknown]
  - Premature delivery [Unknown]
